FAERS Safety Report 14159487 (Version 1)
Quarter: 2017Q4

REPORT INFORMATION
  Report Type: Spontaneous
  Country: BE (occurrence: BE)
  Receive Date: 20171106
  Receipt Date: 20171106
  Transmission Date: 20180321
  Serious: Yes (Disabling)
  Sender: FDA-Public Use
  Company Number: BE-ROCHE-2019480

PATIENT

DRUGS (1)
  1. XOLAIR [Suspect]
     Active Substance: OMALIZUMAB
     Indication: CHRONIC SPONTANEOUS URTICARIA
     Dosage: UNK
     Route: 058
     Dates: start: 20171020

REACTIONS (6)
  - Limb injury [Unknown]
  - Loss of consciousness [Unknown]
  - Lip injury [Unknown]
  - Blood pressure decreased [Unknown]
  - Nausea [Unknown]
  - Fall [Unknown]
